FAERS Safety Report 8246058-3 (Version None)
Quarter: 2012Q1

REPORT INFORMATION
  Report Type: 
  Country: None (occurrence: None)
  Receive Date: 20120330
  Receipt Date: 20120323
  Transmission Date: 20120608
  Serious: No
  Sender: FDA-Public Use
  Company Number: US-PFIZER INC-2012057102

PATIENT
  Sex: Female
  Weight: 77.098 kg

DRUGS (2)
  1. ATENOLOL [Concomitant]
     Indication: HYPERTENSION
     Dosage: UNK
  2. LATANOPROST [Suspect]
     Indication: GLAUCOMA
     Dosage: DAILY AT NIGHT
     Route: 047
     Dates: start: 20111101, end: 20120301

REACTIONS (1)
  - DRUG INEFFECTIVE [None]
